FAERS Safety Report 5801449-2 (Version None)
Quarter: 2008Q3

REPORT INFORMATION
  Report Type: 
  Country: None (occurrence: None)
  Receive Date: 20080703
  Receipt Date: 20080703
  Transmission Date: 20090109
  Serious: Yes (Life-Threatening, Hospitalization, Other)
  Sender: FDA-Public Use
  Company Number: None

PATIENT
  Age: 35 Year
  Sex: Female
  Weight: 81.6475 kg

DRUGS (3)
  1. LEVAQUIN [Suspect]
     Indication: RESPIRATORY TRACT INFECTION
     Dosage: LEVAQUIN 1XDAILY PO
     Route: 048
  2. TOPAMAX [Suspect]
     Indication: NERVE INJURY
     Dosage: TOPAMAX 2XDAILY PO
     Route: 048
  3. ZITHROMAX [Suspect]
     Indication: RESPIRATORY TRACT INFECTION

REACTIONS (1)
  - STEVENS-JOHNSON SYNDROME [None]
